FAERS Safety Report 8727065 (Version 1)
Quarter: 2012Q4

REPORT INFORMATION
  Report Type: 
  Country: US (occurrence: US)
  Receive Date: 20120912
  Receipt Date: 20120912
  Transmission Date: 20130627
  Serious: Yes (Other)
  Sender: FDA-Public Use
  Company Number: US-ROCHE-1100867

PATIENT
  Sex: Female

DRUGS (7)
  1. ACTIVASE [Suspect]
     Indication: ACUTE MYOCARDIAL INFARCTION
     Route: 065
  2. COUMADINE [Concomitant]
     Route: 048
  3. ENALAPRIL [Concomitant]
     Route: 065
  4. FEVARIN [Concomitant]
     Route: 065
  5. ASCORBATE SODIUM [Concomitant]
     Route: 065
  6. METOPROLOL [Concomitant]
     Route: 065
  7. NITROSTAT [Concomitant]

REACTIONS (2)
  - Postinfarction angina [Unknown]
  - Uterine haemorrhage [Unknown]
